FAERS Safety Report 8308228 (Version 6)
Quarter: 2013Q2

REPORT INFORMATION
  Report Type: Spontaneous
  Country: US (occurrence: US)
  Receive Date: 20111222
  Receipt Date: 20130613
  Transmission Date: 20140414
  Serious: Yes (Hospitalization, Disabling, Other)
  Sender: FDA-Public Use
  Company Number: US-009507513-1112USA02653

PATIENT
  Sex: Female
  Weight: 61.22 kg

DRUGS (8)
  1. FOSAMAX [Suspect]
     Indication: OSTEOPOROSIS
     Dosage: 35 MG, QW
     Route: 048
     Dates: start: 2003, end: 200402
  2. FOSAMAX [Suspect]
     Dosage: 70 MG, QW
     Route: 048
     Dates: start: 200402, end: 200805
  3. ALENDRONATE SODIUM [Suspect]
     Indication: OSTEOPOROSIS
     Dosage: 70 MG, QW
     Route: 048
     Dates: start: 200805, end: 200912
  4. LEXAPRO [Concomitant]
     Indication: MENOPAUSE
  5. VIVELLE-DOT [Concomitant]
     Indication: HORMONE THERAPY
  6. ZOMIG [Concomitant]
     Indication: MIGRAINE WITH AURA
     Dosage: 5 MG, Q4H
  7. AXERT [Concomitant]
     Indication: MIGRAINE
  8. ESTROGENS (UNSPECIFIED) [Concomitant]
     Indication: HORMONE REPLACEMENT THERAPY
     Dosage: UNK
     Dates: start: 1970

REACTIONS (42)
  - Intramedullary rod insertion [Not Recovered/Not Resolved]
  - Intramedullary rod insertion [Not Recovered/Not Resolved]
  - Low turnover osteopathy [Not Recovered/Not Resolved]
  - Hysterectomy [Unknown]
  - Adenoidectomy [Unknown]
  - Salpingo-oophorectomy bilateral [Unknown]
  - Tonsillectomy [Unknown]
  - Tibia fracture [Unknown]
  - Arthroscopy [Unknown]
  - Femur fracture [Not Recovered/Not Resolved]
  - Femur fracture [Not Recovered/Not Resolved]
  - Meniscus injury [Unknown]
  - Anxiety [Unknown]
  - Mood altered [Unknown]
  - Depression [Unknown]
  - Adverse event [Unknown]
  - Haemangioma [Unknown]
  - Granuloma [Unknown]
  - Leukocytosis [Recovered/Resolved]
  - Sleep disorder [Unknown]
  - Renal impairment [Unknown]
  - Bundle branch block left [Unknown]
  - Uterine dilation and curettage [Unknown]
  - Anaemia postoperative [Unknown]
  - Arthritis [Unknown]
  - Osteoarthritis [Unknown]
  - Hyperlipidaemia [Unknown]
  - Road traffic accident [Unknown]
  - Diverticulum [Unknown]
  - Paraesthesia [Unknown]
  - Osteoarthritis [Unknown]
  - Cervical radiculopathy [Unknown]
  - Weight increased [Unknown]
  - Tooth disorder [Unknown]
  - Visual impairment [Unknown]
  - Adverse event [Unknown]
  - Synovial cyst [Unknown]
  - Pain in extremity [Unknown]
  - Nausea [Recovered/Resolved]
  - Diarrhoea [Unknown]
  - Constipation [Unknown]
  - Vomiting [Unknown]
